FAERS Safety Report 5090723-6 (Version None)
Quarter: 2006Q3

REPORT INFORMATION
  Report Type: 
  Country: None (occurrence: None)
  Receive Date: 20060823
  Receipt Date: 20060530
  Transmission Date: 20061208
  Serious: Yes (Life-Threatening, Hospitalization)
  Sender: FDA-Public Use
  Company Number: JPKYO-S-20060021-V001

PATIENT
  Age: 73 Year
  Sex: Male

DRUGS (5)
  1. NAVELBINE [Suspect]
     Indication: LUNG ADENOCARCINOMA STAGE IV
     Dosage: 40 MILLIGRAM, INTRAVENOUS
     Route: 042
     Dates: start: 20050823, end: 20060404
  2. PANTOSIN - PANTETHINE [Concomitant]
  3. MAGNESIUM OXIDE - MAGNESIUM OXIDE [Concomitant]
  4. CODEINE PHOSPHATE - CODEINE PHOSPHATE [Concomitant]
  5. LOXONIN - LOXOPROFEN SODIUM [Concomitant]

REACTIONS (3)
  - ACUTE PULMONARY OEDEMA [None]
  - ACUTE RESPIRATORY FAILURE [None]
  - VOMITING [None]
